FAERS Safety Report 7351912-0 (Version None)
Quarter: 2011Q1

REPORT INFORMATION
  Report Type: 
  Country: None (occurrence: None)
  Receive Date: 20110315
  Receipt Date: 20110310
  Transmission Date: 20110831
  Serious: No
  Sender: FDA-Public Use
  Company Number: US-ROXANE LABORATORIES, INC.-2011-RO-00295RO

PATIENT
  Age: 50 Year
  Sex: Female

DRUGS (1)
  1. BUPRENORPHINE HCL [Suspect]
     Indication: DRUG DEPENDENCE
     Dosage: 24 MG
     Route: 060

REACTIONS (3)
  - TABLET PHYSICAL ISSUE [None]
  - DRUG INEFFECTIVE [None]
  - PRODUCT FRIABLE [None]
